FAERS Safety Report 17289915 (Version 1)
Quarter: 2020Q1

REPORT INFORMATION
  Report Type: Spontaneous
  Country: US (occurrence: US)
  Receive Date: 20200120
  Receipt Date: 20200120
  Transmission Date: 20200409
  Serious: Yes (Hospitalization, Other)
  Sender: FDA-Public Use
  Company Number: US-ELI_LILLY_AND_COMPANY-US202001004572

PATIENT
  Age: 77 Year
  Sex: Female

DRUGS (1)
  1. BASAGLAR [Suspect]
     Active Substance: INSULIN GLARGINE
     Indication: TYPE 2 DIABETES MELLITUS
     Dosage: 40 U, DAILY
     Route: 058

REACTIONS (11)
  - Ear discomfort [Unknown]
  - Peripheral swelling [Unknown]
  - Dysgraphia [Unknown]
  - Ear pain [Unknown]
  - Hypoacusis [Unknown]
  - Localised infection [Unknown]
  - Neuropathy peripheral [Unknown]
  - Pain [Unknown]
  - Gait disturbance [Unknown]
  - Impaired healing [Recovering/Resolving]
  - Excessive cerumen production [Unknown]
